FAERS Safety Report 23415730 (Version 3)
Quarter: 2024Q1

REPORT INFORMATION
  Report Type: Spontaneous
  Country: CA (occurrence: CA)
  Receive Date: 20240118
  Receipt Date: 20240325
  Transmission Date: 20240410
  Serious: Yes (Other)
  Sender: FDA-Public Use
  Company Number: CA-CELLTRION INC.-2023CA023386

PATIENT

DRUGS (6)
  1. INFLECTRA [Suspect]
     Active Substance: INFLIXIMAB-DYYB
     Indication: Crohn^s disease
     Dosage: 300 MG AT 0,2,6 WEEKS, THEN EVERY 8 WEEKS
     Route: 042
     Dates: start: 20231013
  2. INFLECTRA [Suspect]
     Active Substance: INFLIXIMAB-DYYB
     Dosage: 300 MG AT 0,2,6 WEEKS, THEN EVERY 8 WEEKS
     Route: 042
     Dates: start: 20231027
  3. INFLECTRA [Suspect]
     Active Substance: INFLIXIMAB-DYYB
     Dosage: 300 MG, WEEK 6
     Route: 042
     Dates: start: 20231124
  4. INFLECTRA [Suspect]
     Active Substance: INFLIXIMAB-DYYB
     Dosage: 300 MG, AFTER 6 WEEKS AND 5 DAYS (RESCUE DOSE THEN EVERY 8 WEEKS)
     Route: 042
     Dates: start: 20240110, end: 20240110
  5. INFLECTRA [Suspect]
     Active Substance: INFLIXIMAB-DYYB
     Dosage: 300 MG, AFTER 9 DAYS (RESCUE DOSE THEN EVERY 8 WEEKS)
     Route: 042
     Dates: start: 20240119
  6. INFLECTRA [Suspect]
     Active Substance: INFLIXIMAB-DYYB
     Dosage: 300 MG, RESCUE DOSE THEN EVERY 8 WEEKS
     Route: 042
     Dates: start: 20240315

REACTIONS (6)
  - Condition aggravated [Not Recovered/Not Resolved]
  - Arthralgia [Not Recovered/Not Resolved]
  - Feeling cold [Unknown]
  - Vein rupture [Not Recovered/Not Resolved]
  - Poor venous access [Unknown]
  - Off label use [Unknown]

NARRATIVE: CASE EVENT DATE: 20230101
